FAERS Safety Report 5246424-4 (Version None)
Quarter: 2007Q1

REPORT INFORMATION
  Report Type: 
  Country: None (occurrence: None)
  Receive Date: 20070226
  Receipt Date: 20070213
  Transmission Date: 20070707
  Serious: Yes (Other)
  Sender: FDA-Public Use
  Company Number: US-SANOFI-SYNTHELABO-A03200701314

PATIENT
  Sex: Male

DRUGS (2)
  1. TYLENOL W/ CODEINE [Concomitant]
     Dosage: UNK
     Route: 048
  2. AMBIEN [Suspect]
     Indication: INSOMNIA
     Dosage: UNK
     Route: 048
     Dates: start: 20061101

REACTIONS (5)
  - AMNESIA [None]
  - FALL [None]
  - HAND FRACTURE [None]
  - PAIN [None]
  - SKIN LACERATION [None]
